FAERS Safety Report 5104880-6 (Version None)
Quarter: 2006Q3

REPORT INFORMATION
  Report Type: 
  Country: None (occurrence: None)
  Receive Date: 20060914
  Receipt Date: 20050805
  Transmission Date: 20061208
  Serious: Yes (Disabling)
  Sender: FDA-Public Use
  Company Number: PHBS2005CH11328

PATIENT
  Age: 77 Year
  Sex: Female

DRUGS (6)
  1. ZOMETA [Suspect]
     Indication: METASTASES TO BONE
     Dosage: 4 MG EVERY 4-6 WKS
     Dates: start: 20030401, end: 20050601
  2. FEMARA [Concomitant]
     Indication: BREAST CANCER IN SITU
  3. CONCOR [Concomitant]
     Indication: HYPERTENSION
  4. SORTIS [Concomitant]
     Indication: HYPERCHOLESTEROLAEMIA
  5. ATACAND HCT [Concomitant]
     Indication: HYPERTENSION
  6. ASPIRIN [Concomitant]
     Indication: PROPHYLAXIS

REACTIONS (7)
  - BONE TRIMMING [None]
  - LOCALISED INFECTION [None]
  - OSTEOMYELITIS ACUTE [None]
  - OSTEONECROSIS [None]
  - PLASTIC SURGERY [None]
  - PRIMARY SEQUESTRUM [None]
  - TOOTH EXTRACTION [None]
